FAERS Safety Report 7526600-8 (Version None)
Quarter: 2011Q2

REPORT INFORMATION
  Report Type: 
  Country: None (occurrence: None)
  Receive Date: 20110606
  Receipt Date: 20110531
  Transmission Date: 20111010
  Serious: No
  Sender: FDA-Public Use
  Company Number: JP-ABBOTT-11P-087-0705221-00

PATIENT
  Sex: Male

DRUGS (5)
  1. HUMIRA [Suspect]
     Indication: RHEUMATOID ARTHRITIS
     Route: 058
     Dates: start: 20090515, end: 20110203
  2. SULFASALAZINE [Concomitant]
     Indication: RHEUMATOID ARTHRITIS
     Dosage: DAILY DOSE: 1000 MG
     Route: 048
     Dates: start: 20070521, end: 20100308
  3. METHOTREXATE [Concomitant]
     Indication: RHEUMATOID ARTHRITIS
     Dosage: DAILY DOSE: 8 MG
     Route: 048
     Dates: start: 20080901
  4. FOLIC ACID [Concomitant]
     Indication: PROPHYLAXIS
     Dosage: DAILY DOSE: 5 MG
     Route: 048
     Dates: start: 20101004
  5. FOLIC ACID [Concomitant]

REACTIONS (1)
  - CELL MARKER INCREASED [None]
